FAERS Safety Report 4513670-4 (Version None)
Quarter: 2004Q4

REPORT INFORMATION
  Report Type: 
  Country: None (occurrence: None)
  Receive Date: 20041130
  Receipt Date: 20040823
  Transmission Date: 20050328
  Serious: No
  Sender: FDA-Public Use
  Company Number: US-GLAXOSMITHKLINE-A0523057A

PATIENT
  Sex: Female

DRUGS (1)
  1. WELLBUTRIN [Suspect]
     Indication: DEPRESSION
     Dosage: 150MG PER DAY
     Route: 048

REACTIONS (6)
  - ABNORMAL DREAMS [None]
  - ACNE [None]
  - DISTURBANCE IN ATTENTION [None]
  - HEADACHE [None]
  - IRRITABILITY [None]
  - SLEEP DISORDER [None]
